FAERS Safety Report 21138989 (Version 2)
Quarter: 2022Q3

REPORT INFORMATION
  Report Type: Report from Study
  Country: IT (occurrence: IT)
  Receive Date: 20220727
  Receipt Date: 20220829
  Transmission Date: 20221026
  Serious: Yes (Other)
  Sender: FDA-Public Use
  Company Number: None

PATIENT
  Age: 83 Year
  Sex: Female

DRUGS (12)
  1. QUETIAPINE [Suspect]
     Active Substance: QUETIAPINE
     Indication: Cognitive disorder
     Dosage: 25 MILLIGRAM, BID
     Route: 048
     Dates: start: 20220314, end: 20220315
  2. LEVOSULPIRIDE [Concomitant]
     Active Substance: LEVOSULPIRIDE
     Dosage: UNK
     Route: 065
  3. BISOPROLOL FUMARATE [Concomitant]
     Active Substance: BISOPROLOL FUMARATE
     Dosage: UNK
     Route: 065
  4. LACOSAMIDE [Concomitant]
     Active Substance: LACOSAMIDE
     Dosage: UNK, DOSAGE INCREASED FROM 150 MG / DAY TO 200 MG / DAY (100 MG / BID )
     Route: 065
  5. ALPRAZOLAM [Concomitant]
     Active Substance: ALPRAZOLAM
     Dosage: UNK
     Route: 065
  6. ASPIRIN [Concomitant]
     Active Substance: ASPIRIN
     Dosage: UNK
     Route: 065
  7. PLAVIX [Concomitant]
     Active Substance: CLOPIDOGREL BISULFATE
     Dosage: UNK
     Route: 065
  8. SERTRALINE [Concomitant]
     Active Substance: SERTRALINE HYDROCHLORIDE
     Dosage: UNK
     Route: 065
  9. ATORVASTATIN [Concomitant]
     Active Substance: ATORVASTATIN
     Dosage: UNK
     Route: 065
  10. FUROSEMIDE [Concomitant]
     Active Substance: FUROSEMIDE
     Dosage: 25 MILLIGRAM, QD
     Route: 065
  11. RABEPRAZOLO [Concomitant]
     Dosage: UNK
     Route: 065
  12. AMLODIPINE [Concomitant]
     Active Substance: AMLODIPINE BESYLATE
     Dosage: UNK
     Route: 065

REACTIONS (2)
  - Epilepsy [Recovered/Resolved]
  - Presyncope [Recovered/Resolved]

NARRATIVE: CASE EVENT DATE: 20220315
